FAERS Safety Report 22246579 (Version 3)
Quarter: 2024Q3

REPORT INFORMATION
  Report Type: Report from Study
  Country: US (occurrence: US)
  Receive Date: 20230424
  Receipt Date: 20240830
  Transmission Date: 20241017
  Serious: Yes (Hospitalization, Other)
  Sender: NOVARTIS
  Company Number: US-002147023-NVSC2023US090994

PATIENT
  Age: 57 Year
  Sex: Male

DRUGS (3)
  1. ENTRESTO [Suspect]
     Active Substance: SACUBITRIL\VALSARTAN
     Indication: Product used for unknown indication
     Dosage: 1 DOSAGE FORM (24/26 MG), BID
     Route: 048
  2. ENTRESTO [Suspect]
     Active Substance: SACUBITRIL\VALSARTAN
     Dosage: 1 DOSAGE FORM (24/26 MG), BID
     Route: 048
     Dates: start: 202403
  3. FUROSEMIDE [Suspect]
     Active Substance: FUROSEMIDE
     Indication: Product used for unknown indication
     Dosage: UNK
     Route: 065

REACTIONS (11)
  - Renal disorder [Unknown]
  - Fluid retention [Unknown]
  - Hypotension [Unknown]
  - Dizziness [Unknown]
  - Syncope [Unknown]
  - Loss of consciousness [Unknown]
  - Fall [Unknown]
  - Back pain [Unknown]
  - Tremor [Unknown]
  - Haematoma [Unknown]
  - Volume blood decreased [Unknown]

NARRATIVE: CASE EVENT DATE: 20230326
